FAERS Safety Report 25909230 (Version 4)
Quarter: 2025Q4

REPORT INFORMATION
  Report Type: Spontaneous
  Country: JP (occurrence: JP)
  Receive Date: 20251011
  Receipt Date: 20251017
  Transmission Date: 20260117
  Serious: Yes (Other)
  Sender: GALDERMA
  Company Number: JP-GALDERMA-JP2025019726

PATIENT

DRUGS (7)
  1. NEMOLIZUMAB [Suspect]
     Active Substance: NEMOLIZUMAB
     Indication: Neurodermatitis
     Dosage: 60 MILLIGRAM/4WEEKS
     Route: 058
     Dates: start: 20250801, end: 20250801
  2. NEMOLIZUMAB [Suspect]
     Active Substance: NEMOLIZUMAB
     Dosage: 30 MILLIGRAM/4WEEKS
     Route: 058
     Dates: start: 20250902, end: 20250902
  3. Heparinoid [Concomitant]
     Indication: Neurodermatitis
     Route: 061
  4. CLOBETASOL [Concomitant]
     Active Substance: CLOBETASOL
     Indication: Neurodermatitis
     Dosage: UNK
     Route: 061
  5. OLOPATADINE HYDROCHLORIDE [Concomitant]
     Active Substance: OLOPATADINE HYDROCHLORIDE
     Indication: Neurodermatitis
     Dosage: 10 MILLIGRAMS
     Route: 048
  6. BILASTINE [Concomitant]
     Active Substance: BILASTINE
     Indication: Neurodermatitis
     Dosage: 20 MILLIGRAMS
     Route: 048
  7. TRAMCET [Concomitant]
     Active Substance: ACETAMINOPHEN\TRAMADOL
     Indication: Neurodermatitis
     Dosage: UNK
     Route: 048

REACTIONS (1)
  - Pharyngeal cancer [Unknown]

NARRATIVE: CASE EVENT DATE: 20251001
